FAERS Safety Report 11090987 (Version 1)
Quarter: 2015Q2

REPORT INFORMATION
  Report Type: Spontaneous
  Country: US (occurrence: None)
  Receive Date: 20150504
  Receipt Date: 20150504
  Transmission Date: 20150821
  Serious: Yes (Life-Threatening, Hospitalization)
  Sender: FDA-Public Use
  Company Number: None

PATIENT
  Age: 93 Year
  Sex: Female
  Weight: 64.86 kg

DRUGS (1)
  1. SENSIPAR [Suspect]
     Active Substance: CINACALCET HYDROCHLORIDE
     Indication: HYPERCALCAEMIA
     Route: 048

REACTIONS (5)
  - Renal failure [None]
  - Dysphagia [None]
  - Hypertension [None]
  - Unresponsive to stimuli [None]
  - Confusional state [None]

NARRATIVE: CASE EVENT DATE: 20150429
